FAERS Safety Report 19563129 (Version 1)
Quarter: 2021Q3

REPORT INFORMATION
  Report Type: Spontaneous
  Country: US (occurrence: US)
  Receive Date: 20210716
  Receipt Date: 20210716
  Transmission Date: 20211014
  Serious: Yes (Life-Threatening, Other)
  Sender: FDA-Public Use
  Company Number: None

PATIENT
  Age: 69 Year
  Sex: Female
  Weight: 79.2 kg

DRUGS (1)
  1. BELBUCA [Suspect]
     Active Substance: BUPRENORPHINE HYDROCHLORIDE
     Indication: PAIN MANAGEMENT
     Dosage: ?          QUANTITY:1 PATCH(ES);?
     Route: 048
     Dates: start: 20210714, end: 20210714

REACTIONS (10)
  - Palpitations [None]
  - Vertigo [None]
  - Headache [None]
  - Psychomotor hyperactivity [None]
  - Gait disturbance [None]
  - Pain in jaw [None]
  - Drug ineffective [None]
  - Nausea [None]
  - Chest pain [None]
  - Hypertension [None]

NARRATIVE: CASE EVENT DATE: 20210714
